FAERS Safety Report 12323384 (Version 3)
Quarter: 2016Q2

REPORT INFORMATION
  Report Type: Report from Study
  Country: US (occurrence: US)
  Receive Date: 20160502
  Receipt Date: 20160624
  Transmission Date: 20160815
  Serious: Yes (Death)
  Sender: FDA-Public Use
  Company Number: US-JNJFOC-20160500143

PATIENT
  Age: 67 Year
  Sex: Male
  Weight: 114 kg

DRUGS (8)
  1. IBRUTINIB [Suspect]
     Active Substance: IBRUTINIB
     Indication: THERAPY NAIVE
     Route: 048
     Dates: start: 20150513, end: 20160330
  2. VITAMIN B COMPLEX [Concomitant]
     Active Substance: CYANOCOBALAMIN\DEXPANTHENOL\NIACINAMIDE\PYRIDOXINE HYDROCHLORIDE\RIBOFLAVIN 5^-PHOSPHATE SODIUM\THIAMINE HYDROCHLORIDE\VITAMIN B COMPLEX
  3. ASPIRIN. [Concomitant]
     Active Substance: ASPIRIN
  4. GINKO BILOBA [Concomitant]
     Active Substance: GINKGO
  5. NIACIN. [Concomitant]
     Active Substance: NIACIN
  6. IBRUTINIB [Suspect]
     Active Substance: IBRUTINIB
     Indication: CHRONIC LYMPHOCYTIC LEUKAEMIA
     Route: 048
     Dates: start: 20150513, end: 20160330
  7. FISH OIL [Concomitant]
     Active Substance: FISH OIL
  8. TOCOPHEROL [Concomitant]
     Active Substance: TOCOPHEROL

REACTIONS (1)
  - Sudden death [Fatal]
